FAERS Safety Report 10047237 (Version 2)
Quarter: 2014Q1

REPORT INFORMATION
  Report Type: Spontaneous
  Country: US (occurrence: US)
  Receive Date: 20140331
  Receipt Date: 20140331
  Transmission Date: 20141002
  Serious: No
  Sender: FDA-Public Use
  Company Number: US-MYLANLABS-2013S1022849

PATIENT
  Sex: Female
  Weight: 58.97 kg

DRUGS (13)
  1. FENTANYL TRANSDERMAL SYSTEM [Suspect]
     Indication: PAIN
     Dosage: Q72H
     Route: 062
     Dates: start: 2013
  2. LOVAZA [Concomitant]
     Route: 048
  3. METHOCARBAMOL [Concomitant]
     Route: 048
  4. COZAAR [Concomitant]
     Route: 048
  5. ASPIRIN [Concomitant]
     Route: 048
  6. LYRICA [Concomitant]
     Route: 048
  7. AMITRIPTYLINE [Concomitant]
     Route: 048
  8. FENOFIBRATE [Concomitant]
     Route: 048
  9. CRESTOR [Concomitant]
     Route: 048
  10. LEFLUNOMIDE [Concomitant]
     Route: 048
  11. HCTZ [Concomitant]
     Route: 048
  12. ALLEGRA [Concomitant]
     Route: 048
  13. OMEPRAZOLE [Concomitant]

REACTIONS (2)
  - Application site burn [Not Recovered/Not Resolved]
  - Application site pruritus [Not Recovered/Not Resolved]
